FAERS Safety Report 19760269 (Version 5)
Quarter: 2022Q2

REPORT INFORMATION
  Report Type: Report from Study
  Country: US (occurrence: US)
  Receive Date: 20210830
  Receipt Date: 20220421
  Transmission Date: 20220721
  Serious: No
  Sender: FDA-Public Use
  Company Number: NVSC2021US195355

PATIENT
  Sex: Female

DRUGS (1)
  1. COSENTYX [Suspect]
     Active Substance: SECUKINUMAB
     Indication: Psoriatic arthropathy
     Dosage: UNK
     Route: 065
     Dates: start: 20210817

REACTIONS (3)
  - Injection site pain [Recovered/Resolved]
  - COVID-19 [Recovered/Resolved]
  - Therapeutic product effect incomplete [Not Recovered/Not Resolved]
